FAERS Safety Report 6753256-4 (Version None)
Quarter: 2010Q2

REPORT INFORMATION
  Report Type: 
  Country: None (occurrence: None)
  Receive Date: 20100526
  Receipt Date: 20100225
  Transmission Date: 20101027
  Serious: No
  Sender: FDA-Public Use
  Company Number: 305053

PATIENT
  Age: 77 Year
  Sex: Male

DRUGS (1)
  1. VICTOZA [Suspect]
     Indication: INSULIN-REQUIRING TYPE 2 DIABETES MELLITUS
     Dosage: 0.6 MG, QD
     Dates: start: 20100224

REACTIONS (1)
  - NAUSEA [None]
